FAERS Safety Report 14091384 (Version 2)
Quarter: 2017Q4

REPORT INFORMATION
  Report Type: Report from Study
  Country: BR (occurrence: BR)
  Receive Date: 20171016
  Receipt Date: 20171215
  Transmission Date: 20180321
  Serious: Yes (Disabling, Other)
  Sender: FDA-Public Use
  Company Number: BR-ROCHE-1782241

PATIENT
  Sex: Female
  Weight: 51 kg

DRUGS (5)
  1. METICORTEN [Concomitant]
     Active Substance: PREDNISONE
     Indication: RHEUMATOID ARTHRITIS
     Dosage: 1 TABLET
     Route: 065
  2. CALCIUM CARBONATE. [Concomitant]
     Active Substance: CALCIUM CARBONATE
  3. LIPITOR [Concomitant]
     Active Substance: ATORVASTATIN CALCIUM
     Indication: BLOOD CHOLESTEROL ABNORMAL
  4. AZULFIDINE [Concomitant]
     Active Substance: SULFASALAZINE
     Indication: RHEUMATOID ARTHRITIS
     Route: 065
  5. MABTHERA [Suspect]
     Active Substance: RITUXIMAB
     Indication: RHEUMATOID ARTHRITIS
     Dosage: DATE OF LAST INFUSION OF RITUXIMAB PRIOR TP SAE: 29/MAY/2017 ?FIRST INFUSION
     Route: 042
     Dates: start: 20100201

REACTIONS (7)
  - Dementia Alzheimer^s type [Recovering/Resolving]
  - Tinnitus [Recovering/Resolving]
  - Blood cholesterol abnormal [Recovering/Resolving]
  - Deafness [Unknown]
  - Dizziness [Recovering/Resolving]
  - Weight decreased [Unknown]
  - Thyroid mass [Unknown]
